FAERS Safety Report 5492732-1 (Version None)
Quarter: 2007Q4

REPORT INFORMATION
  Report Type: 
  Country: None (occurrence: None)
  Receive Date: 20071019
  Receipt Date: 20071011
  Transmission Date: 20080405
  Serious: Yes (Death)
  Sender: FDA-Public Use
  Company Number: 2007SP020934

PATIENT
  Age: 47 Year
  Sex: Male
  Weight: 84 kg

DRUGS (1)
  1. TEMOZOLOMIDE [Suspect]
     Indication: DRUG USE FOR UNKNOWN INDICATION
     Dosage: 300 MG;
     Dates: start: 20070215, end: 20070727

REACTIONS (1)
  - DEATH [None]
